FAERS Safety Report 21033826 (Version 2)
Quarter: 2023Q1

REPORT INFORMATION
  Report Type: Spontaneous
  Country: JP (occurrence: JP)
  Receive Date: 20220701
  Receipt Date: 20230120
  Transmission Date: 20230417
  Serious: Yes (Death, Other)
  Sender: FDA-Public Use
  Company Number: JP-TAKEDA-2022TJP060892

PATIENT

DRUGS (1)
  1. ZEJULA [Suspect]
     Active Substance: NIRAPARIB
     Indication: Ovarian cancer recurrent
     Dosage: 100 MG, QD
     Route: 048
     Dates: start: 20220609, end: 20220622

REACTIONS (8)
  - Malignant ascites [Fatal]
  - Drug eruption [Recovered/Resolved]
  - Photosensitivity reaction [Recovered/Resolved]
  - Urinary bladder haemorrhage [Unknown]
  - Urinary bladder rupture [Unknown]
  - C-reactive protein increased [Unknown]
  - Eosinophil count increased [Unknown]
  - Blood pressure increased [Unknown]

NARRATIVE: CASE EVENT DATE: 20220622
